FAERS Safety Report 11890832 (Version 2)
Quarter: 2016Q1

REPORT INFORMATION
  Report Type: Report from Study
  Country: CA (occurrence: CA)
  Receive Date: 20160106
  Receipt Date: 20160114
  Transmission Date: 20160526
  Serious: Yes (Other)
  Sender: FDA-Public Use
  Company Number: CA-ALEXION-A201505440

PATIENT
  Sex: Male
  Weight: 84.82 kg

DRUGS (13)
  1. MAGNESIUM [Concomitant]
     Active Substance: MAGNESIUM
     Indication: SUPPLEMENTATION THERAPY
     Dosage: 6 TABLETS, QD
     Route: 048
     Dates: start: 201206
  2. ADVIL [Concomitant]
     Active Substance: IBUPROFEN
     Indication: NASOPHARYNGITIS
     Dosage: UNK, PRN
     Route: 048
     Dates: start: 20150517
  3. SOLIRIS [Suspect]
     Active Substance: ECULIZUMAB
     Dosage: 900 MG, Q2W
     Route: 042
     Dates: start: 20110915
  4. ADALAT [Concomitant]
     Active Substance: NIFEDIPINE
     Indication: HYPERTENSION
     Dosage: 20 MG, QD
     Route: 048
     Dates: start: 20091201
  5. TYLENOL EXTRA STRENGTH [Concomitant]
     Active Substance: ACETAMINOPHEN
     Indication: PAIN
     Dosage: 500 MG, PRN
     Route: 048
  6. PANTOLOC                           /01263204/ [Concomitant]
     Active Substance: PANTOPRAZOLE SODIUM
     Indication: PROPHYLAXIS
     Dosage: 40 MG, BID
     Route: 048
  7. APO-PEN-VK [Concomitant]
     Indication: INFECTION PROPHYLAXIS
     Dosage: 300 MG, TID
     Route: 048
     Dates: start: 20110815
  8. SOLIRIS [Suspect]
     Active Substance: ECULIZUMAB
     Dosage: 900 MG, Q2W
     Route: 042
     Dates: start: 20110915
  9. EPREX [Concomitant]
     Active Substance: ERYTHROPOIETIN
     Indication: PRODUCT USED FOR UNKNOWN INDICATION
     Dosage: UNK
     Route: 058
     Dates: start: 20091201
  10. PROGRAF [Concomitant]
     Active Substance: TACROLIMUS\TACROLIMUS ANHYDROUS
     Indication: APLASTIC ANAEMIA
     Dosage: 1 MG, BID 2 CO
     Route: 048
     Dates: start: 20120228
  11. FOLIC ACID. [Concomitant]
     Active Substance: FOLIC ACID
     Indication: SUPPLEMENTATION THERAPY
     Dosage: 5 MG, QD
     Route: 048
     Dates: start: 20091201
  12. OXYCODONE [Concomitant]
     Active Substance: OXYCODONE
     Indication: PAIN
     Dosage: 5 MG, PRN
     Route: 048
     Dates: start: 201006
  13. SOLIRIS [Suspect]
     Active Substance: ECULIZUMAB
     Indication: PAROXYSMAL NOCTURNAL HAEMOGLOBINURIA
     Dosage: 600 MG, UNK
     Route: 042
     Dates: start: 20110818, end: 20110908

REACTIONS (1)
  - Haemoglobinuria [Not Recovered/Not Resolved]

NARRATIVE: CASE EVENT DATE: 2015
